FAERS Safety Report 10088026 (Version 3)
Quarter: 2014Q2

REPORT INFORMATION
  Report Type: Report from Study
  Country: US (occurrence: US)
  Receive Date: 20140420
  Receipt Date: 20140523
  Transmission Date: 20141212
  Serious: Yes (Hospitalization)
  Sender: FDA-Public Use
  Company Number: PHEH2014US006059

PATIENT
  Age: 56 Year
  Sex: Male

DRUGS (1)
  1. CLOZARIL [Suspect]
     Dosage: 150 MG

REACTIONS (5)
  - Chronic obstructive pulmonary disease [Unknown]
  - White blood cell count increased [Not Recovered/Not Resolved]
  - Pneumonia [Unknown]
  - Dizziness [Unknown]
  - Neutrophil count increased [Unknown]
